FAERS Safety Report 5033000-1 (Version None)
Quarter: 2006Q2

REPORT INFORMATION
  Report Type: 
  Country: None (occurrence: None)
  Receive Date: 20060622
  Receipt Date: 20060609
  Transmission Date: 20061013
  Serious: Yes (Other)
  Sender: FDA-Public Use
  Company Number: PHBS2006JP08844

PATIENT
  Age: 64 Year

DRUGS (1)
  1. NEORAL [Suspect]
     Indication: PULMONARY FIBROSIS
     Dosage: 200 MG/D
     Route: 048
     Dates: start: 20060301

REACTIONS (3)
  - VISION BLURRED [None]
  - VISUAL DISTURBANCE [None]
  - VISUAL FIELD DEFECT [None]
